FAERS Safety Report 6213011-0 (Version None)
Quarter: 2009Q2

REPORT INFORMATION
  Report Type: 
  Country: None (occurrence: None)
  Receive Date: 20090601
  Receipt Date: 20090601
  Transmission Date: 20091009
  Serious: Yes (Hospitalization)
  Sender: FDA-Public Use
  Company Number: None

PATIENT
  Sex: Female
  Weight: 82.7 kg

DRUGS (2)
  1. CISPLATIN [Suspect]
     Dosage: 108 MG
  2. ETOPOSIDE [Suspect]
     Dosage: 405 MG

REACTIONS (2)
  - ATRIAL TACHYCARDIA [None]
  - OESOPHAGEAL STENOSIS [None]
